FAERS Safety Report 7629452-0 (Version None)
Quarter: 2011Q3

REPORT INFORMATION
  Report Type: 
  Country: None (occurrence: None)
  Receive Date: 20110715
  Receipt Date: 20110704
  Transmission Date: 20111222
  Serious: Yes (Other)
  Sender: FDA-Public Use
  Company Number: OSCN-NO-1107S-0160

PATIENT
  Age: 37 Year
  Sex: Female
  Weight: 80 kg

DRUGS (5)
  1. LONARID-N (SOLPADEINE /00154101/) [Concomitant]
  2. METHYLPREDNISOLONE (MEDROL) (METHYLPREDNISOLONE) [Concomitant]
  3. OMEPRAZOLE [Concomitant]
  4. PHENYTOIN SODIUM CAP [Suspect]
     Indication: CONVULSION
     Dosage: 300 MG, D, ORAL
     Route: 048
  5. OMNISCAN [Suspect]
     Indication: ASTROCYTOMA
     Dosage: SINGLE DOSE, INTRAVENOUS
     Route: 042
     Dates: start: 20110415, end: 20110415

REACTIONS (2)
  - STEVENS-JOHNSON SYNDROME [None]
  - TOXIC EPIDERMAL NECROLYSIS [None]
